FAERS Safety Report 5974633-5 (Version None)
Quarter: 2008Q4

REPORT INFORMATION
  Report Type: 
  Country: None (occurrence: None)
  Receive Date: 20081201
  Receipt Date: 20080204
  Transmission Date: 20090506
  Serious: No
  Sender: FDA-Public Use
  Company Number: US-AMGEN-KDL263776

PATIENT
  Sex: Female

DRUGS (8)
  1. ENBREL [Suspect]
     Indication: JUVENILE ARTHRITIS
     Route: 058
     Dates: start: 20010130
  2. NEXIUM [Concomitant]
     Route: 048
  3. CALCIUM [Concomitant]
     Route: 048
  4. UNSPECIFIED GASTROINTESTINAL AGENT [Concomitant]
  5. VITAMIN TAB [Concomitant]
     Route: 048
  6. TYLENOL (CAPLET) [Concomitant]
  7. CORTISONE ACETATE TAB [Concomitant]
  8. POLYGAM S/D [Concomitant]

REACTIONS (2)
  - ARTHRALGIA [None]
  - RHEUMATOID ARTHRITIS [None]
